FAERS Safety Report 11937998 (Version 2)
Quarter: 2016Q1

REPORT INFORMATION
  Report Type: Spontaneous
  Country: US (occurrence: US)
  Receive Date: 20160122
  Receipt Date: 20160310
  Transmission Date: 20160526
  Serious: Yes (Other)
  Sender: FDA-Public Use
  Company Number: US-ASTRAZENECA-2016SE04890

PATIENT
  Sex: Female
  Weight: 86.2 kg

DRUGS (6)
  1. BYETTA [Suspect]
     Active Substance: EXENATIDE
     Indication: TYPE 2 DIABETES MELLITUS
     Route: 058
  2. NORVASC [Concomitant]
     Active Substance: AMLODIPINE BESYLATE
     Indication: BLOOD PRESSURE ABNORMAL
  3. ZETIA [Concomitant]
     Active Substance: EZETIMIBE
  4. COZAAR [Concomitant]
     Active Substance: LOSARTAN POTASSIUM
  5. HYDROCHLOROTHIAZIDE. [Concomitant]
     Active Substance: HYDROCHLOROTHIAZIDE
  6. CYMBALTA [Concomitant]
     Active Substance: DULOXETINE HYDROCHLORIDE
     Indication: SENSORY LOSS

REACTIONS (8)
  - Weight increased [Unknown]
  - Multiple allergies [Unknown]
  - Product quality issue [Unknown]
  - Body height decreased [Unknown]
  - Balance disorder [Unknown]
  - Head injury [Unknown]
  - Fall [Unknown]
  - Cough [Unknown]
